FAERS Safety Report 24759078 (Version 2)
Quarter: 2025Q1

REPORT INFORMATION
  Report Type: Report from Study
  Country: IT (occurrence: IT)
  Receive Date: 20241220
  Receipt Date: 20250324
  Transmission Date: 20250409
  Serious: Yes (Other)
  Sender: MYLAN
  Company Number: IT-MYLANLABS-2024M1113997

PATIENT
  Sex: Female

DRUGS (12)
  1. DROSPIRENONE\ETHINYL ESTRADIOL [Suspect]
     Active Substance: DROSPIRENONE\ETHINYL ESTRADIOL
     Indication: Hormone therapy
  2. DROSPIRENONE\ETHINYL ESTRADIOL [Suspect]
     Active Substance: DROSPIRENONE\ETHINYL ESTRADIOL
     Route: 065
  3. DROSPIRENONE\ETHINYL ESTRADIOL [Suspect]
     Active Substance: DROSPIRENONE\ETHINYL ESTRADIOL
     Route: 065
  4. DROSPIRENONE\ETHINYL ESTRADIOL [Suspect]
     Active Substance: DROSPIRENONE\ETHINYL ESTRADIOL
  5. VITAMIN D [Suspect]
     Active Substance: VITAMIN D NOS
     Indication: Spinal fracture
  6. VITAMIN D [Suspect]
     Active Substance: VITAMIN D NOS
     Indication: Osteoporotic fracture
     Route: 065
  7. VITAMIN D [Suspect]
     Active Substance: VITAMIN D NOS
     Route: 065
  8. VITAMIN D [Suspect]
     Active Substance: VITAMIN D NOS
  9. CALCIUM [Suspect]
     Active Substance: CALCIUM
     Indication: Spinal fracture
  10. CALCIUM [Suspect]
     Active Substance: CALCIUM
     Indication: Osteoporotic fracture
     Route: 065
  11. CALCIUM [Suspect]
     Active Substance: CALCIUM
     Route: 065
  12. CALCIUM [Suspect]
     Active Substance: CALCIUM

REACTIONS (3)
  - Spinal fracture [Unknown]
  - Osteoporotic fracture [Unknown]
  - Maternal exposure during breast feeding [Unknown]
